FAERS Safety Report 4758501-2 (Version None)
Quarter: 2005Q3

REPORT INFORMATION
  Report Type: 
  Country: None (occurrence: None)
  Receive Date: 20050826
  Receipt Date: 20050815
  Transmission Date: 20060218
  Serious: Yes (Disabling)
  Sender: FDA-Public Use
  Company Number: MK200508-0199-1

PATIENT
  Sex: Male

DRUGS (1)
  1. HEXABRIX [Suspect]
     Indication: ARTHROGRAM
     Dosage: 20 ML, SINGLE USE
     Dates: start: 20050601, end: 20050601

REACTIONS (1)
  - SYNOVITIS [None]
